FAERS Safety Report 7407645-5 (Version None)
Quarter: 2011Q2

REPORT INFORMATION
  Report Type: 
  Country: None (occurrence: None)
  Receive Date: 20110412
  Receipt Date: 20110407
  Transmission Date: 20111010
  Serious: Yes (Other)
  Sender: FDA-Public Use
  Company Number: US-CEPHALON-2009008011

PATIENT
  Age: 55 Year
  Sex: Female
  Weight: 82 kg

DRUGS (14)
  1. COPAXONE [Concomitant]
  2. AVONEX [Concomitant]
  3. AMBIEN [Concomitant]
  4. TYSABRI [Concomitant]
  5. CYMBALTA [Concomitant]
  6. LAMICTAL [Concomitant]
  7. ANTIDEPRESSANT [Concomitant]
  8. PROVIGIL [Suspect]
     Indication: FATIGUE
     Route: 048
     Dates: start: 20020101
  9. THYROID REPLACEMENT [Concomitant]
  10. HORMONE REPLACEMENT [Concomitant]
  11. ARICEPT [Concomitant]
  12. NAMENDA [Concomitant]
  13. PROVIGIL [Suspect]
     Route: 048
  14. MELLARIL [Concomitant]

REACTIONS (14)
  - EATING DISORDER [None]
  - ALCOHOL PROBLEM [None]
  - MAGICAL THINKING [None]
  - MEMORY IMPAIRMENT [None]
  - ANXIETY [None]
  - BIPOLAR DISORDER [None]
  - SUICIDAL IDEATION [None]
  - STRESS [None]
  - INSOMNIA [None]
  - POST-TRAUMATIC STRESS DISORDER [None]
  - MANIA [None]
  - AGGRESSION [None]
  - JUDGEMENT IMPAIRED [None]
  - MENTAL IMPAIRMENT [None]
